FAERS Safety Report 16708478 (Version 1)
Quarter: 2019Q3

REPORT INFORMATION
  Report Type: Spontaneous
  Country: GB (occurrence: GB)
  Receive Date: 20190816
  Receipt Date: 20190816
  Transmission Date: 20191004
  Serious: Yes (Other)
  Sender: FDA-Public Use
  Company Number: GB-AMGEN-GBRSP2019126150

PATIENT
  Age: 30 Year
  Sex: Female

DRUGS (1)
  1. ENBREL [Suspect]
     Active Substance: ETANERCEPT
     Indication: PSORIATIC ARTHROPATHY
     Dosage: 50 MILLIGRAM, QWK
     Route: 065

REACTIONS (9)
  - Tongue neoplasm [Unknown]
  - Injection site pruritus [Unknown]
  - Injection site rash [Unknown]
  - Oral neoplasm [Unknown]
  - Seasonal allergy [Unknown]
  - Injection site erythema [Unknown]
  - Injection site swelling [Unknown]
  - Stomatitis [Unknown]
  - Condition aggravated [Unknown]
